FAERS Safety Report 22196422 (Version 1)
Quarter: 2023Q2

REPORT INFORMATION
  Report Type: Spontaneous
  Country: IN (occurrence: IN)
  Receive Date: 20230411
  Receipt Date: 20230411
  Transmission Date: 20230721
  Serious: Yes (Other)
  Sender: FDA-Public Use
  Company Number: IN-MLMSERVICE-20230327-4178540-1

PATIENT
  Age: 58 Year
  Sex: Female

DRUGS (6)
  1. CISPLATIN [Suspect]
     Active Substance: CISPLATIN
     Indication: Ovarian germ cell endodermal sinus tumour
  2. ETOPOSIDE [Suspect]
     Active Substance: ETOPOSIDE
     Indication: Metastases to peritoneum
  3. CISPLATIN [Suspect]
     Active Substance: CISPLATIN
     Indication: Metastases to peritoneum
  4. CISPLATIN [Suspect]
     Active Substance: CISPLATIN
     Indication: Ovarian adenoma
  5. ETOPOSIDE [Suspect]
     Active Substance: ETOPOSIDE
     Indication: Metastases to peritoneum
  6. ETOPOSIDE [Suspect]
     Active Substance: ETOPOSIDE
     Indication: Ovarian adenoma

REACTIONS (2)
  - Ascites [Unknown]
  - Melaena [Unknown]
